FAERS Safety Report 22525602 (Version 12)
Quarter: 2025Q3

REPORT INFORMATION
  Report Type: Report from Study
  Country: US (occurrence: US)
  Receive Date: 20230606
  Receipt Date: 20250801
  Transmission Date: 20251021
  Serious: No
  Sender: DAIICHI
  Company Number: US-DAIICHI SANKYO, INC.-DSU-2023-122377AA

PATIENT
  Sex: Female

DRUGS (3)
  1. PEXIDARTINIB [Suspect]
     Active Substance: PEXIDARTINIB
     Indication: Synovitis
     Dosage: 250 MG, BID
     Route: 048
     Dates: start: 20230427
  2. PEXIDARTINIB [Suspect]
     Active Substance: PEXIDARTINIB
     Indication: Giant cell tumour of tendon sheath
     Dosage: 375 MG (125 MG EVERY AM AND 250MG EVERY PM), BID
     Route: 048
     Dates: start: 20230427
  3. PEXIDARTINIB [Suspect]
     Active Substance: PEXIDARTINIB
     Route: 048
     Dates: start: 20230731

REACTIONS (21)
  - Sensitive skin [Not Recovered/Not Resolved]
  - Full blood count decreased [Not Recovered/Not Resolved]
  - Menstrual disorder [Not Recovered/Not Resolved]
  - Hormone level abnormal [Not Recovered/Not Resolved]
  - Endodontic procedure [Not Recovered/Not Resolved]
  - Surgery [Not Recovered/Not Resolved]
  - Pain in jaw [Not Recovered/Not Resolved]
  - Acne [Not Recovered/Not Resolved]
  - Acne [Not Recovered/Not Resolved]
  - Dehydration [Unknown]
  - Asthenia [Not Recovered/Not Resolved]
  - Eye swelling [Not Recovered/Not Resolved]
  - Fatigue [Not Recovered/Not Resolved]
  - Abdominal pain [Not Recovered/Not Resolved]
  - Fatigue [Not Recovered/Not Resolved]
  - Dermatitis acneiform [Not Recovered/Not Resolved]
  - Rash [Recovering/Resolving]
  - Drug intolerance [Not Recovered/Not Resolved]
  - Hepatic enzyme abnormal [Not Recovered/Not Resolved]
  - Product dose omission issue [Not Recovered/Not Resolved]
  - Product dose omission in error [Not Recovered/Not Resolved]

NARRATIVE: CASE EVENT DATE: 20230101
